FAERS Safety Report 4825577-3 (Version None)
Quarter: 2005Q4

REPORT INFORMATION
  Report Type: 
  Country: None (occurrence: None)
  Receive Date: 20051111
  Receipt Date: 20050919
  Transmission Date: 20060501
  Serious: No
  Sender: FDA-Public Use
  Company Number: US-GLAXOSMITHKLINE-A0574820A

PATIENT
  Age: 62 Year
  Sex: Female

DRUGS (2)
  1. AVODART [Suspect]
     Dosage: .5MG PER DAY
     Route: 048
     Dates: start: 20050915
  2. NO CONCURRENT MEDICATION [Concomitant]

REACTIONS (1)
  - DRUG ADMINISTRATION ERROR [None]
